FAERS Safety Report 7833941-3 (Version None)
Quarter: 2011Q4

REPORT INFORMATION
  Report Type: 
  Country: None (occurrence: None)
  Receive Date: 20111024
  Receipt Date: 20111019
  Transmission Date: 20120403
  Serious: Yes (Other)
  Sender: FDA-Public Use
  Company Number: US-ROCHE-1005972

PATIENT
  Sex: Female

DRUGS (4)
  1. ATENOLOL [Concomitant]
  2. BONIVA [Suspect]
     Indication: OSTEOPOROSIS
     Route: 048
  3. WARFARIN SODIUM [Concomitant]
  4. BENICAR [Concomitant]

REACTIONS (3)
  - PAIN IN JAW [None]
  - DYSKINESIA [None]
  - EAR PAIN [None]
